FAERS Safety Report 6452689-3 (Version None)
Quarter: 2009Q4

REPORT INFORMATION
  Report Type: 
  Country: None (occurrence: None)
  Receive Date: 20091123
  Receipt Date: 20091123
  Transmission Date: 20100525
  Serious: Yes (Hospitalization)
  Sender: FDA-Public Use
  Company Number: None

PATIENT
  Age: 10 Week
  Sex: Male
  Weight: 7.95 kg

DRUGS (3)
  1. TAMIFLU [Suspect]
     Indication: INFLUENZA LIKE ILLNESS
     Dosage: 1 ML  TWICE DAILY X5D ORAL
     Route: 048
     Dates: start: 20091018, end: 20091024
  2. ZANTAC [Concomitant]
  3. TYLENOL (CAPLET) [Concomitant]

REACTIONS (3)
  - CYANOSIS [None]
  - DYSKINESIA [None]
  - PARTIAL SEIZURES [None]
